FAERS Safety Report 4396723-3 (Version None)
Quarter: 2004Q3

REPORT INFORMATION
  Report Type: 
  Country: None (occurrence: None)
  Receive Date: 20040713
  Receipt Date: 20040713
  Transmission Date: 20050211
  Serious: Yes (Hospitalization)
  Sender: FDA-Public Use
  Company Number: None

PATIENT
  Age: 74 Year
  Sex: Male
  Weight: 119.3 kg

DRUGS (2)
  1. CLOPIDOGREL [Suspect]
     Indication: CEREBROVASCULAR ACCIDENT PROPHYLAXIS
     Dosage: 75MG, 75MG QD, ORAL
     Route: 048
     Dates: start: 20010919, end: 20040610
  2. CLOPIDOGREL [Suspect]
     Indication: CORONARY ARTERY DISEASE
     Dosage: 75MG, 75MG QD, ORAL
     Route: 048
     Dates: start: 20010919, end: 20040610

REACTIONS (1)
  - GASTROINTESTINAL HAEMORRHAGE [None]
